APPROVED DRUG PRODUCT: PILOPINE HS
Active Ingredient: PILOCARPINE HYDROCHLORIDE
Strength: 4%
Dosage Form/Route: GEL;OPHTHALMIC
Application: N018796 | Product #001
Applicant: ALCON LABORATORIES INC
Approved: Oct 1, 1984 | RLD: No | RS: No | Type: DISCN